FAERS Safety Report 8276009-7 (Version None)
Quarter: 2012Q2

REPORT INFORMATION
  Report Type: 
  Country: None (occurrence: None)
  Receive Date: 20120412
  Receipt Date: 20120403
  Transmission Date: 20120825
  Serious: Yes (Hospitalization, Other)
  Sender: FDA-Public Use
  Company Number: US-BAYER-2010-008051

PATIENT
  Age: 22 Year
  Sex: Female
  Weight: 63.492 kg

DRUGS (18)
  1. YASMIN [Suspect]
     Dosage: UNK
     Dates: start: 20050901, end: 20100518
  2. KLONOPIN [Concomitant]
  3. ZOLOFT [Concomitant]
  4. SERTRALINE HYDROCHLORIDE [Concomitant]
  5. ONDANSETRON [Concomitant]
  6. CELEXA [Concomitant]
  7. OMEPRAZOLE [Concomitant]
  8. YAZ [Suspect]
     Dosage: UNK
     Dates: start: 20050901, end: 20100518
  9. ZOFRAN [Concomitant]
  10. LORAZEPAM [Concomitant]
  11. YAZ [Suspect]
     Dosage: UNK
     Dates: start: 20060623, end: 20100518
  12. YASMIN [Suspect]
     Dosage: UNK
     Dates: start: 20060623, end: 20100518
  13. AZITHROMYCIN [Concomitant]
  14. CITALOPRAM HYDROBROMIDE [Concomitant]
  15. FLUTICASONE FUROATE [Concomitant]
  16. PROCHLORPERAZINE [Concomitant]
  17. ADDERALL 5 [Concomitant]
  18. ALBUTEROL SULFATE [Concomitant]

REACTIONS (10)
  - NAUSEA [None]
  - CHOLECYSTITIS INFECTIVE [None]
  - OVARIAN CYST [None]
  - DEPRESSION [None]
  - ANXIETY [None]
  - ABDOMINAL PAIN [None]
  - PAIN [None]
  - BILIARY DYSKINESIA [None]
  - GALLBLADDER PAIN [None]
  - VOMITING [None]
